FAERS Safety Report 9597901 (Version 1)
Quarter: 2013Q4

REPORT INFORMATION
  Report Type: Spontaneous
  Country: US (occurrence: US)
  Receive Date: 20131004
  Receipt Date: 20131004
  Transmission Date: 20140711
  Serious: No
  Sender: FDA-Public Use
  Company Number: US-AMGEN-USASP2013021649

PATIENT
  Age: 41 Year
  Sex: Female
  Weight: 88.89 kg

DRUGS (10)
  1. ENBREL [Suspect]
     Indication: PRODUCT USED FOR UNKNOWN INDICATION
     Dosage: 50 MG, QWK
     Route: 058
  2. AMITRIPTYLIN [Concomitant]
     Dosage: 50 MG, UNK
  3. PEPCID AC [Concomitant]
     Dosage: 10 MG, UNK
  4. FOLIC ACID [Concomitant]
     Dosage: UNK
  5. PLAQUENIL                          /00072602/ [Concomitant]
     Dosage: 200 MG, UNK
  6. TRAMADOL HCL [Concomitant]
     Dosage: 50 MG, UNK
  7. METHOTREXATE [Concomitant]
     Dosage: 2.5 MG, UNK
  8. FLINTSTONES COMPLETE [Concomitant]
     Dosage: UNK
  9. VITAMIN B 12 [Concomitant]
     Dosage: 1000 MUG, UNK
     Route: 060
  10. CALCIUM D                          /00944201/ [Concomitant]
     Dosage: UNK

REACTIONS (2)
  - Sinus headache [Unknown]
  - Eye pain [Unknown]
